FAERS Safety Report 7020848-7 (Version None)
Quarter: 2010Q3

REPORT INFORMATION
  Report Type: 
  Country: None (occurrence: None)
  Receive Date: 20100929
  Receipt Date: 20100920
  Transmission Date: 20110219
  Serious: Yes (Hospitalization)
  Sender: FDA-Public Use
  Company Number: US-ASTRAZENECA-2010SE44064

PATIENT
  Age: 52 Year
  Sex: Female
  Weight: 73.5 kg

DRUGS (8)
  1. NEXIUM [Suspect]
     Indication: GASTROOESOPHAGEAL REFLUX DISEASE
     Route: 048
  2. NEXIUM [Suspect]
     Route: 048
  3. KEPPRA [Concomitant]
     Route: 048
  4. KLONOPIN [Concomitant]
  5. ATENOLOL [Concomitant]
  6. INDICET [Concomitant]
  7. FLEXERIL [Concomitant]
  8. PATANOL [Concomitant]
     Route: 047

REACTIONS (8)
  - CHOLECYSTECTOMY [None]
  - DIARRHOEA [None]
  - DRUG DOSE OMISSION [None]
  - GASTRITIS [None]
  - HAEMATOCHEZIA [None]
  - MUSCLE SPASMS [None]
  - OESOPHAGEAL DILATATION [None]
  - VOMITING [None]
